FAERS Safety Report 4844201-7 (Version None)
Quarter: 2005Q4

REPORT INFORMATION
  Report Type: 
  Country: None (occurrence: None)
  Receive Date: 20051202
  Receipt Date: 20051025
  Transmission Date: 20060501
  Serious: Yes (Hospitalization, Other)
  Sender: FDA-Public Use
  Company Number: US-GLAXOSMITHKLINE-A0579584A

PATIENT
  Age: 34 Year
  Sex: Male

DRUGS (7)
  1. PAROXETINE [Suspect]
     Indication: GENERALISED ANXIETY DISORDER
     Dosage: 30MG PER DAY
     Route: 048
  2. PAXIL CR [Suspect]
     Indication: GENERALISED ANXIETY DISORDER
     Dosage: 25MG PER DAY
     Route: 048
     Dates: start: 20051019, end: 20051023
  3. NEXIUM [Concomitant]
  4. EZETIMIBE [Concomitant]
  5. ROSUVASTATIN [Concomitant]
  6. CLOPIDOGREL BISULFATE [Concomitant]
  7. ASPIRIN [Concomitant]

REACTIONS (10)
  - ABNORMAL DREAMS [None]
  - ANXIETY [None]
  - DEHYDRATION [None]
  - DIZZINESS [None]
  - DRUG INEFFECTIVE [None]
  - FATIGUE [None]
  - HYPERVENTILATION [None]
  - LOSS OF CONSCIOUSNESS [None]
  - NAUSEA [None]
  - TENSION [None]
